FAERS Safety Report 5475174-4 (Version None)
Quarter: 2007Q4

REPORT INFORMATION
  Report Type: 
  Country: None (occurrence: None)
  Receive Date: 20071002
  Receipt Date: 20070920
  Transmission Date: 20080405
  Serious: Yes (Other)
  Sender: FDA-Public Use
  Company Number: US-PFIZER INC-2007078450

PATIENT
  Sex: Male

DRUGS (4)
  1. LYRICA [Suspect]
     Indication: HYPOAESTHESIA
     Route: 048
  2. AMARYL [Concomitant]
     Route: 048
  3. ATACAND [Concomitant]
     Route: 048
  4. ATENOLOL [Concomitant]
     Route: 048

REACTIONS (5)
  - EYE SWELLING [None]
  - LACRIMATION INCREASED [None]
  - OCULAR DISCOMFORT [None]
  - VISUAL ACUITY REDUCED [None]
  - WEIGHT INCREASED [None]
